FAERS Safety Report 11920039 (Version 1)
Quarter: 2016Q1

REPORT INFORMATION
  Report Type: Spontaneous
  Country: US (occurrence: US)
  Receive Date: 20160115
  Receipt Date: 20160115
  Transmission Date: 20160526
  Serious: Yes (Other)
  Sender: FDA-Public Use
  Company Number: US-PFIZER INC-2016012263

PATIENT
  Sex: Male

DRUGS (1)
  1. VIAGRA [Suspect]
     Active Substance: SILDENAFIL CITRATE
     Indication: PENILE VASCULAR DISORDER
     Dosage: UNK

REACTIONS (3)
  - Product use issue [Unknown]
  - Gait disturbance [Unknown]
  - Gout [Recovering/Resolving]
